FAERS Safety Report 12997856 (Version 2)
Quarter: 2016Q4

REPORT INFORMATION
  Report Type: Report from Study
  Country: US (occurrence: US)
  Receive Date: 20161205
  Receipt Date: 20161227
  Transmission Date: 20170207
  Serious: Yes (Hospitalization, Other)
  Sender: FDA-Public Use
  Company Number: US-MALLINCKRODT-T201606176

PATIENT
  Age: 73 Year
  Sex: Female

DRUGS (5)
  1. PLAVIX [Concomitant]
     Active Substance: CLOPIDOGREL BISULFATE
  2. REPOSITORY CORTICOTROPIN INJECTION [Suspect]
     Active Substance: CORTICOTROPIN
     Dosage: 48U/0.6ML EVERY OTHER DAY
     Route: 058
  3. FLOVENT [Concomitant]
     Active Substance: FLUTICASONE PROPIONATE
  4. REPOSITORY CORTICOTROPIN INJECTION [Suspect]
     Active Substance: CORTICOTROPIN
     Indication: RHEUMATOID ARTHRITIS
     Dosage: 48U/0.6ML EVERY OTHER DAY
     Route: 058
     Dates: start: 20130501, end: 20161105
  5. REPOSITORY CORTICOTROPIN INJECTION [Suspect]
     Active Substance: CORTICOTROPIN
     Indication: SYSTEMIC LUPUS ERYTHEMATOSUS
     Dosage: 40U/.5ML EVERYDAY
     Route: 058
     Dates: start: 20161106

REACTIONS (9)
  - Oesophageal stenosis [Unknown]
  - Coronary artery disease [Recovering/Resolving]
  - Gastrooesophageal reflux disease [Unknown]
  - Heart rate decreased [Recovering/Resolving]
  - Syncope [Recovering/Resolving]
  - Stomatitis [Unknown]
  - Vomiting [Unknown]
  - Pneumonia [Unknown]
  - Oral candidiasis [Unknown]

NARRATIVE: CASE EVENT DATE: 201605
